FAERS Safety Report 15275524 (Version 1)
Quarter: 2018Q3

REPORT INFORMATION
  Report Type: Spontaneous
  Country: CN (occurrence: CN)
  Receive Date: 20180814
  Receipt Date: 20180814
  Transmission Date: 20181010
  Serious: Yes (Other)
  Sender: FDA-Public Use
  Company Number: CN-PFIZER INC-2018318793

PATIENT
  Age: 38 Year
  Sex: Female

DRUGS (1)
  1. SUNITINIB MALATE. [Suspect]
     Active Substance: SUNITINIB MALATE
     Indication: METASTATIC RENAL CELL CARCINOMA
     Dosage: 50 MG, CYCLIC  (STANDARD 4 WEEKS ON AND 2 WEEKS OFF SCHEDULE) (2 CYCLES)
     Route: 048

REACTIONS (3)
  - Hypertension [Unknown]
  - Generalised oedema [Unknown]
  - Palmar-plantar erythrodysaesthesia syndrome [Unknown]
